FAERS Safety Report 14500167 (Version 1)
Quarter: 2018Q1

REPORT INFORMATION
  Report Type: Not Available
  Country: US (occurrence: US)
  Receive Date: 20180207
  Receipt Date: 20180207
  Transmission Date: 20180509
  Serious: No
  Sender: FDA-Public Use
  Company Number: US-FOUNDATIONCONSUMERHC-2017-US-014964

PATIENT
  Age: 34 Year
  Sex: Female
  Weight: 72.58 kg

DRUGS (1)
  1. TAKE ACTION [Suspect]
     Active Substance: LEVONORGESTREL
     Dosage: 1 TAB PO
     Route: 048
     Dates: start: 20171119, end: 20171119

REACTIONS (6)
  - Vaginal discharge [Unknown]
  - Abdominal pain [Unknown]
  - Menstruation delayed [Unknown]
  - Diarrhoea [Unknown]
  - Neck pain [Unknown]
  - Arthralgia [Unknown]

NARRATIVE: CASE EVENT DATE: 20171127
